FAERS Safety Report 4319432-5 (Version None)
Quarter: 2004Q1

REPORT INFORMATION
  Report Type: 
  Country: None (occurrence: None)
  Receive Date: 20040318
  Receipt Date: 20040318
  Transmission Date: 20041129
  Serious: No
  Sender: FDA-Public Use
  Company Number: None

PATIENT
  Sex: Male
  Weight: 84 kg

DRUGS (1)
  1. LISINOPRIL [Suspect]
     Indication: HYPERTENSION
     Dosage: 10 MG QD ORAL
     Route: 048
     Dates: start: 20031203, end: 20040305

REACTIONS (2)
  - BLOOD PRESSURE INCREASED [None]
  - MEDICATION ERROR [None]
